FAERS Safety Report 5882296-2 (Version None)
Quarter: 2008Q3

REPORT INFORMATION
  Report Type: 
  Country: None (occurrence: None)
  Receive Date: 20080912
  Receipt Date: 20080729
  Transmission Date: 20090109
  Serious: No
  Sender: FDA-Public Use
  Company Number: US-ABBOTT-08P-163-0467063-00

PATIENT
  Sex: Female
  Weight: 74.91 kg

DRUGS (6)
  1. HUMIRA [Suspect]
     Indication: CROHN'S DISEASE
     Route: 050
     Dates: start: 20080728
  2. HUMIRA [Suspect]
     Route: 050
  3. HUMIRA [Suspect]
     Route: 050
  4. MESALAMINE [Concomitant]
     Indication: CROHN'S DISEASE
     Route: 048
     Dates: start: 20080612
  5. METRODIAZALINE [Concomitant]
     Indication: CROHN'S DISEASE
     Route: 048
     Dates: start: 20080612
  6. FOLIC ACID [Concomitant]
     Indication: CROHN'S DISEASE
     Route: 048
     Dates: start: 20080612

REACTIONS (1)
  - UNDERDOSE [None]
